FAERS Safety Report 4607509-6 (Version None)
Quarter: 2005Q1

REPORT INFORMATION
  Report Type: 
  Country: None (occurrence: None)
  Receive Date: 20050309
  Receipt Date: 20050224
  Transmission Date: 20050727
  Serious: Yes (Hospitalization, Disabling)
  Sender: FDA-Public Use
  Company Number: 2005AP01344

PATIENT
  Age: 69 Year
  Sex: Male
  Weight: 68 kg

DRUGS (5)
  1. IRESSA [Suspect]
     Indication: NON-SMALL CELL LUNG CANCER
     Dosage: 250 MG DAILY PO
     Route: 048
     Dates: start: 20041212, end: 20050101
  2. CELEBREX [Concomitant]
  3. BETAHISTIDINE [Concomitant]
  4. SULPIRIDE [Concomitant]
  5. OMEPRAZOLE [Concomitant]

REACTIONS (5)
  - BRONCHIAL INFECTION [None]
  - CONFUSIONAL STATE [None]
  - DISEASE PROGRESSION [None]
  - DISORIENTATION [None]
  - FALL [None]
